FAERS Safety Report 16276295 (Version 1)
Quarter: 2019Q2

REPORT INFORMATION
  Report Type: Spontaneous
  Country: US (occurrence: US)
  Receive Date: 20190504
  Receipt Date: 20190504
  Transmission Date: 20190711
  Serious: Yes (Other)
  Sender: FDA-Public Use
  Company Number: None

PATIENT
  Age: 60 Year
  Sex: Female
  Weight: 125.1 kg

DRUGS (9)
  1. TRULICITY [Concomitant]
     Active Substance: DULAGLUTIDE
  2. CPAP [Concomitant]
     Active Substance: DEVICE
  3. ROPINOLE [Concomitant]
  4. BENLYSTA [Suspect]
     Active Substance: BELIMUMAB
     Indication: SYSTEMIC LUPUS ERYTHEMATOSUS
     Dosage: ?          OTHER FREQUENCY:WEEKLY INJECTION;?
     Route: 030
  5. URSO FORTE [Concomitant]
     Active Substance: URSODIOL
  6. PROBIOTICS [Concomitant]
     Active Substance: PROBIOTICS NOS
  7. MULTI VITAMIN WITH MINERALS [Concomitant]
  8. TYLENOL [Concomitant]
     Active Substance: ACETAMINOPHEN
  9. CELEBREX [Concomitant]
     Active Substance: CELECOXIB

REACTIONS (5)
  - Ear pain [None]
  - Nausea [None]
  - Pain in jaw [None]
  - Urticaria [None]
  - Post procedural complication [None]

NARRATIVE: CASE EVENT DATE: 20190412
